FAERS Safety Report 9296109 (Version 1)
Quarter: 2013Q2

REPORT INFORMATION
  Report Type: Spontaneous
  Country: US (occurrence: US)
  Receive Date: 20130517
  Receipt Date: 20130517
  Transmission Date: 20140414
  Serious: No
  Sender: FDA-Public Use
  Company Number: US-009507513-1305USA004836

PATIENT
  Sex: Female

DRUGS (4)
  1. SINEMET [Suspect]
     Indication: PARKINSON^S DISEASE
     Dosage: 1 TABLET, 5 TIMES PER DAY
     Route: 048
  2. CARBIDOPA (+) LEVODOPA [Suspect]
     Route: 048
  3. XANAX [Concomitant]
  4. NEURONTIN [Concomitant]

REACTIONS (11)
  - Hyperhidrosis [Not Recovered/Not Resolved]
  - Dysuria [Not Recovered/Not Resolved]
  - Fatigue [Not Recovered/Not Resolved]
  - Flatulence [Not Recovered/Not Resolved]
  - Glossodynia [Not Recovered/Not Resolved]
  - Weight increased [Not Recovered/Not Resolved]
  - Anxiety [Not Recovered/Not Resolved]
  - Gait disturbance [Not Recovered/Not Resolved]
  - Memory impairment [Not Recovered/Not Resolved]
  - Hypoaesthesia [Not Recovered/Not Resolved]
  - Eating disorder [Not Recovered/Not Resolved]
